FAERS Safety Report 7942114-5 (Version None)
Quarter: 2011Q4

REPORT INFORMATION
  Report Type: 
  Country: None (occurrence: None)
  Receive Date: 20111114
  Receipt Date: 20110630
  Transmission Date: 20120403
  Serious: Yes (Other)
  Sender: FDA-Public Use
  Company Number: 2011029127

PATIENT
  Sex: Female
  Weight: 74.3899 kg

DRUGS (1)
  1. HIZENTRA [Suspect]
     Indication: IMMUNODEFICIENCY COMMON VARIABLE
     Dosage: 14 G 1X/WEEK SUBCUTANEOUS)
     Route: 058
     Dates: start: 20110517

REACTIONS (4)
  - HEADACHE [None]
  - DIARRHOEA [None]
  - INFUSION SITE REACTION [None]
  - DIZZINESS [None]
